FAERS Safety Report 16035073 (Version 2)
Quarter: 2019Q1

REPORT INFORMATION
  Report Type: Report from Study
  Country: JP (occurrence: JP)
  Receive Date: 20190305
  Receipt Date: 20190315
  Transmission Date: 20190418
  Serious: Yes (Hospitalization)
  Sender: FDA-Public Use
  Company Number: JP-AMGEN-JPNCT2019033428

PATIENT
  Age: 65 Year
  Sex: Male

DRUGS (22)
  1. DARBEPOETIN ALFA [Suspect]
     Active Substance: DARBEPOETIN ALFA
     Dosage: 15 MICROGRAM, QWK
     Route: 065
     Dates: start: 20180903
  2. KIKLIN [Concomitant]
     Active Substance: BIXALOMER
     Indication: HYPERPHOSPHATAEMIA
     Dosage: 0.5 GRAM, TID
     Route: 048
     Dates: start: 20180821
  3. ALFAROL [Concomitant]
     Active Substance: ALFACALCIDOL
     Indication: PARATHYROID TUMOUR
     Dosage: 25 MICROGRAM, QD
     Route: 048
  4. LIDOCAINE. [Concomitant]
     Active Substance: LIDOCAINE
     Indication: DERMATITIS CONTACT
     Dosage: 36 MILLIGRAM, 3 TIMES/WK
     Dates: start: 20180730
  5. ACETYLOL [Concomitant]
     Indication: DERMATITIS CONTACT
     Dosage: ADEQUATE DOSE, BID
     Route: 061
     Dates: start: 20180807
  6. DERMOVATE [Concomitant]
     Active Substance: CLOBETASOL
     Indication: DERMATITIS CONTACT
     Dosage: PROPER QUANTITY, AS NECESSARY (PRN)
     Route: 061
     Dates: start: 20181025
  7. DARBEPOETIN ALFA [Suspect]
     Active Substance: DARBEPOETIN ALFA
     Indication: NEPHROGENIC ANAEMIA
     Dosage: 15 MICROGRAM, QWK
     Route: 065
     Dates: start: 20180611
  8. DARBEPOETIN ALFA [Suspect]
     Active Substance: DARBEPOETIN ALFA
     Dosage: 20 MICROGRAM, QWK
     Route: 065
     Dates: start: 20180618
  9. ARTIST [Concomitant]
     Active Substance: CARVEDILOL
     Indication: HYPERTENSION
     Dosage: 10 MILLIGRAM, QD
     Route: 048
  10. GENTACIN [Concomitant]
     Active Substance: GENTAMICIN SULFATE
     Indication: DERMATITIS CONTACT
     Dosage: ADEQUATE DOSE, AS NECESSARY (PRN)
     Route: 061
     Dates: start: 20181020
  11. NEXIUM [Concomitant]
     Active Substance: ESOMEPRAZOLE MAGNESIUM
     Indication: GASTROOESOPHAGEAL REFLUX DISEASE
     Dosage: 20 MILLIGRAM, QD
     Route: 048
  12. AMLODIPINE [Concomitant]
     Active Substance: AMLODIPINE BESYLATE
     Indication: HYPERTENSION
     Dosage: 10 MILLIGRAM, QD
     Route: 048
  13. DARBEPOETIN ALFA [Suspect]
     Active Substance: DARBEPOETIN ALFA
     Dosage: 10 MICROGRAM, QWK
     Route: 065
     Dates: start: 20180917
  14. DARBEPOETIN ALFA [Suspect]
     Active Substance: DARBEPOETIN ALFA
     Dosage: 10 MICROGRAM, QWK
     Route: 065
     Dates: start: 20190107
  15. L CARTIN FF [Concomitant]
     Active Substance: LEVOCARNITINE
     Indication: CARNITINE DEFICIENCY
     Dosage: 500 MILLIGRAM, TID
     Route: 048
  16. AMIYU [AMINO ACIDS NOS] [Concomitant]
     Indication: CHRONIC KIDNEY DISEASE
     Dosage: 2.5 GRAM, TID
     Route: 048
  17. ALMETA [Concomitant]
     Active Substance: ALCLOMETASONE DIPROPIONATE
     Indication: DERMATITIS CONTACT
     Dosage: ADEQUATE DOSE, BID
     Route: 061
  18. MYSER [DIFLUPREDNATE] [Concomitant]
     Indication: DERMATITIS CONTACT
     Dosage: ADEQUATE DOSE, BID
     Route: 061
     Dates: start: 20180807
  19. DARBEPOETIN ALFA [Suspect]
     Active Substance: DARBEPOETIN ALFA
     Dosage: 5 MICROGRAM, QWK
     Route: 065
     Dates: start: 20181126
  20. CALTAN [Concomitant]
     Active Substance: CALCIUM CARBONATE
     Indication: HYPERPHOSPHATAEMIA
     Dosage: 250 MILLIGRAM, TID
     Route: 048
  21. FOLIAMIN [Concomitant]
     Active Substance: FOLIC ACID
     Indication: FOLATE DEFICIENCY
     Dosage: 5 MILLIGRAM, QD
     Route: 048
  22. HEPARINOID [Concomitant]
     Active Substance: CHONDROITIN SULFATE (BOVINE)
     Indication: DERMATITIS CONTACT
     Dosage: ADEQUATE DOSE, AS NECESSARY (PRN)
     Route: 061

REACTIONS (1)
  - Shunt thrombosis [Not Recovered/Not Resolved]

NARRATIVE: CASE EVENT DATE: 20190225
